FAERS Safety Report 12627579 (Version 1)
Quarter: 2016Q3

REPORT INFORMATION
  Report Type: Report from Study
  Country: US (occurrence: US)
  Receive Date: 20160805
  Receipt Date: 20160805
  Transmission Date: 20161109
  Serious: Yes (Other)
  Sender: FDA-Public Use
  Company Number: US-ABBVIE-16K-163-1690882-00

PATIENT
  Age: 59 Year
  Sex: Female
  Weight: 90.8 kg

DRUGS (6)
  1. PRILOSEC [Concomitant]
     Active Substance: OMEPRAZOLE MAGNESIUM
     Indication: GASTROOESOPHAGEAL REFLUX DISEASE
  2. ASPIRIN. [Concomitant]
     Active Substance: ASPIRIN
     Indication: CARDIAC DISORDER
  3. VITAMIN D [Concomitant]
     Active Substance: CHOLECALCIFEROL
     Indication: VITAMIN SUPPLEMENTATION
  4. ALIGN [Concomitant]
     Active Substance: BIFIDOBACTERIUM LONGUM SUBSP. INFANTIS
     Indication: PROBIOTIC THERAPY
  5. LEVOTHYROXINE. [Concomitant]
     Active Substance: LEVOTHYROXINE
     Indication: HYPOTHYROIDISM
  6. HUMIRA [Suspect]
     Active Substance: ADALIMUMAB
     Indication: CROHN^S DISEASE
     Route: 058
     Dates: start: 201503, end: 20160713

REACTIONS (5)
  - Systemic lupus erythematosus [Not Recovered/Not Resolved]
  - Pain [Not Recovered/Not Resolved]
  - Pyrexia [Recovering/Resolving]
  - Arthralgia [Not Recovered/Not Resolved]
  - Facial paralysis [Not Recovered/Not Resolved]

NARRATIVE: CASE EVENT DATE: 201508
